FAERS Safety Report 6409401-3 (Version None)
Quarter: 2009Q4

REPORT INFORMATION
  Report Type: 
  Country: None (occurrence: None)
  Receive Date: 20091021
  Receipt Date: 20091013
  Transmission Date: 20100525
  Serious: Yes (Hospitalization)
  Sender: FDA-Public Use
  Company Number: FR-MERCK-0910FRA00046

PATIENT
  Age: 62 Year
  Sex: Female

DRUGS (4)
  1. ZOCOR [Suspect]
     Indication: HYPERCHOLESTEROLAEMIA
     Route: 048
     Dates: start: 20070101, end: 20090915
  2. FUROSEMIDE AND SPIRONOLACTONE [Concomitant]
     Route: 065
  3. LEVOTHYROXINE SODIUM [Concomitant]
     Indication: HYPOTHYROIDISM
     Route: 065
  4. BISOPROLOL FUMARATE [Concomitant]
     Route: 065

REACTIONS (1)
  - INTERSTITIAL LUNG DISEASE [None]
